FAERS Safety Report 8595918-2 (Version None)
Quarter: 2012Q3

REPORT INFORMATION
  Report Type: 
  Country: None (occurrence: None)
  Receive Date: 20120815
  Receipt Date: 20120802
  Transmission Date: 20120928
  Serious: No
  Sender: FDA-Public Use
  Company Number: US-ASTRAZENECA-2012SE54695

PATIENT
  Age: 72 Year
  Sex: Female
  Weight: 87.1 kg

DRUGS (5)
  1. TOPROL-XL [Suspect]
     Route: 048
  2. TOPROL-XL [Suspect]
     Indication: CARDIAC DISORDER
     Route: 048
  3. TOPROL-XL [Suspect]
     Indication: BLOOD PRESSURE
     Route: 048
  4. TAKING OTHER MEDICATIONS [Concomitant]
  5. TOPROL-XL [Suspect]
     Route: 048

REACTIONS (4)
  - DRUG DOSE OMISSION [None]
  - TINNITUS [None]
  - DRUG EFFECT DECREASED [None]
  - OFF LABEL USE [None]
